FAERS Safety Report 15887473 (Version 3)
Quarter: 2019Q1

REPORT INFORMATION
  Report Type: Spontaneous
  Country: US (occurrence: US)
  Receive Date: 20190130
  Receipt Date: 20190225
  Transmission Date: 20190417
  Serious: Yes (Other)
  Sender: FDA-Public Use
  Company Number: US-LUPIN PHARMACEUTICALS INC.-2019-00333

PATIENT
  Age: 62 Year
  Sex: Male
  Weight: 79.37 kg

DRUGS (1)
  1. CEFUROXIME AXETIL TABLETS USP, 500 MG [Suspect]
     Active Substance: CEFUROXIME AXETIL
     Indication: SINUSITIS
     Dosage: 500 MG, QD
     Route: 048
     Dates: start: 20190116, end: 20190118

REACTIONS (3)
  - Dyspnoea [Recovered/Resolved]
  - Choking [Recovering/Resolving]
  - Product solubility abnormal [Unknown]

NARRATIVE: CASE EVENT DATE: 20190117
